FAERS Safety Report 5984014-6 (Version None)
Quarter: 2008Q4

REPORT INFORMATION
  Report Type: 
  Country: None (occurrence: None)
  Receive Date: 20081208
  Receipt Date: 20081126
  Transmission Date: 20090506
  Serious: Yes (Hospitalization, Other)
  Sender: FDA-Public Use
  Company Number: FR-ELI_LILLY_AND_COMPANY-FR200811005985

PATIENT
  Age: 72 Year
  Sex: Male

DRUGS (9)
  1. GEMZAR [Suspect]
     Indication: NON-SMALL CELL LUNG CANCER
     Dosage: UNK, UNKNOWN
     Route: 042
  2. THERAPEUTIC RADIOPHARMACEUTICALS [Concomitant]
     Dosage: UNK, UNKNOWN
     Route: 065
  3. FLECAINE [Concomitant]
     Indication: ARRHYTHMIA
     Dosage: 150 MG, DAILY (1/D)
     Route: 065
  4. PLAVIX [Concomitant]
     Dosage: UNK, UNKNOWN
     Route: 065
  5. CRESTOR [Concomitant]
     Dosage: 5 MG, DAILY (1/D)
     Route: 065
  6. DEPAKENE [Concomitant]
     Dosage: 500 MG, DAILY (1/D)
     Route: 065
     Dates: end: 20080928
  7. SOLUPRED [Concomitant]
     Dosage: 20 MG, DAILY (1/D)
     Route: 065
  8. ZOLPIDEM [Concomitant]
     Dosage: 10 MG, DAILY (1/D)
     Route: 065
     Dates: end: 20081003
  9. XANAX [Concomitant]
     Dosage: UNK, UNKNOWN
     Route: 065
     Dates: start: 20080921

REACTIONS (6)
  - ANTICONVULSANT DRUG LEVEL INCREASED [None]
  - CONFUSIONAL STATE [None]
  - ENCEPHALITIS [None]
  - HYPERTHERMIA [None]
  - TREMOR [None]
  - URINARY TRACT INFECTION [None]
